FAERS Safety Report 5797600-3 (Version None)
Quarter: 2008Q3

REPORT INFORMATION
  Report Type: 
  Country: None (occurrence: None)
  Receive Date: 20080702
  Receipt Date: 20080605
  Transmission Date: 20090109
  Serious: No
  Sender: FDA-Public Use
  Company Number: US-BAYER-200818702NA

PATIENT
  Age: 34 Year
  Sex: Female
  Weight: 59 kg

DRUGS (2)
  1. MAGNEVIST [Suspect]
     Indication: NUCLEAR MAGNETIC RESONANCE IMAGING BRAIN
     Dosage: TOTAL DAILY DOSE: 15 ML  UNIT DOSE: 20 ML
     Route: 042
     Dates: start: 20080321, end: 20080321
  2. VITAMIN TAB [Concomitant]

REACTIONS (4)
  - FEELING HOT [None]
  - PALPITATIONS [None]
  - PARAESTHESIA [None]
  - URTICARIA [None]
